FAERS Safety Report 17355989 (Version 1)
Quarter: 2020Q1

REPORT INFORMATION
  Report Type: Spontaneous
  Country: ES (occurrence: ES)
  Receive Date: 20200131
  Receipt Date: 20200131
  Transmission Date: 20200409
  Serious: Yes (Other)
  Sender: FDA-Public Use
  Company Number: ES-ELI_LILLY_AND_COMPANY-ES202001010107

PATIENT
  Age: 50 Year
  Sex: Female

DRUGS (7)
  1. TAMOXIFEN [Concomitant]
     Active Substance: TAMOXIFEN
     Dosage: UNK, UNKNOWN
     Route: 065
  2. PACLITAXEL. [Concomitant]
     Active Substance: PACLITAXEL
     Dosage: 90MG / M2
     Route: 065
     Dates: start: 19990702
  3. GEMCITABINE HYDROCHLORIDE. [Suspect]
     Active Substance: GEMCITABINE HYDROCHLORIDE
     Indication: INFLAMMATORY CARCINOMA OF THE BREAST
     Dosage: 1000 MG, CYCLICAL
     Route: 065
     Dates: start: 201301, end: 201309
  4. TAXOTERE [Concomitant]
     Active Substance: DOCETAXEL
     Indication: PRODUCT USED FOR UNKNOWN INDICATION
     Dosage: 85 MG/M2, UNKNOWN
     Route: 065
     Dates: start: 19981006
  5. XELODA [Suspect]
     Active Substance: CAPECITABINE
     Indication: INFLAMMATORY CARCINOMA OF THE BREAST
     Dosage: 1000 MG, BID
     Route: 065
     Dates: start: 200508
  6. VINORELBINE [Suspect]
     Active Substance: VINORELBINE TARTRATE
     Indication: INFLAMMATORY CARCINOMA OF THE BREAST
     Route: 065
  7. HERCEPTIN [Suspect]
     Active Substance: TRASTUZUMAB
     Indication: INFLAMMATORY CARCINOMA OF THE BREAST
     Dosage: 1 DOSAGE FORM, CYCLICAL
     Route: 065

REACTIONS (6)
  - Off label use [Unknown]
  - Asthenia [Unknown]
  - Lymphoedema [Unknown]
  - Discomfort [Unknown]
  - Depression [Unknown]
  - Palmar-plantar erythrodysaesthesia syndrome [Unknown]

NARRATIVE: CASE EVENT DATE: 201309
